FAERS Safety Report 17956152 (Version 2)
Quarter: 2020Q2

REPORT INFORMATION
  Report Type: Spontaneous
  Country: US (occurrence: US)
  Receive Date: 20200629
  Receipt Date: 20200630
  Transmission Date: 20200714
  Serious: No
  Sender: FDA-Public Use
  Company Number: US-PFIZER INC-2020248864

PATIENT
  Age: 70 Year
  Sex: Male

DRUGS (2)
  1. LYRICA [Suspect]
     Active Substance: PREGABALIN
     Dosage: 75 MG
  2. LYRICA [Suspect]
     Active Substance: PREGABALIN
     Dosage: 150 MG, DAILY(THREE 25MG IN THE MORNING AND THREE 25MG AT NIGHT)

REACTIONS (4)
  - Feeling abnormal [Unknown]
  - Muscle twitching [Unknown]
  - Intentional product misuse [Unknown]
  - Memory impairment [Unknown]
